FAERS Safety Report 16378168 (Version 2)
Quarter: 2019Q3

REPORT INFORMATION
  Report Type: Spontaneous
  Country: FR (occurrence: FR)
  Receive Date: 20190531
  Receipt Date: 20190719
  Transmission Date: 20191004
  Serious: Yes (Disabling)
  Sender: FDA-Public Use
  Company Number: FR-ALLERGAN-1923012US

PATIENT
  Sex: Male
  Weight: 88 kg

DRUGS (1)
  1. OZURDEX [Suspect]
     Active Substance: DEXAMETHASONE
     Indication: RETINAL DISORDER
     Dosage: 0.7 MG, SINGLE
     Route: 031
     Dates: start: 20190306, end: 20190318

REACTIONS (3)
  - Blindness [Not Recovered/Not Resolved]
  - Device dislocation [Recovered/Resolved with Sequelae]
  - Corneal lesion [Not Recovered/Not Resolved]

NARRATIVE: CASE EVENT DATE: 20190314
